FAERS Safety Report 24354717 (Version 2)
Quarter: 2024Q4

REPORT INFORMATION
  Report Type: Report from Study
  Country: AU (occurrence: AU)
  Receive Date: 20240923
  Receipt Date: 20241001
  Transmission Date: 20250115
  Serious: Yes (Other)
  Sender: SAMSUNG BIOEPIS
  Company Number: AU-SAMSUNG BIOEPIS-SB-2024-28279

PATIENT
  Sex: Female

DRUGS (1)
  1. HADLIMA [Suspect]
     Active Substance: ADALIMUMAB-BWWD
     Indication: Rheumatoid arthritis
     Dates: start: 20240515

REACTIONS (2)
  - Paraesthesia [Recovered/Resolved]
  - Depression [Recovered/Resolved]
